FAERS Safety Report 23732201 (Version 2)
Quarter: 2024Q3

REPORT INFORMATION
  Report Type: Spontaneous
  Country: FR (occurrence: FR)
  Receive Date: 20240411
  Receipt Date: 20240904
  Transmission Date: 20241017
  Serious: Yes (Hospitalization)
  Sender: ELI LILLY AND CO
  Company Number: None

PATIENT
  Age: 34 Year
  Sex: Male

DRUGS (2)
  1. OLUMIANT [Suspect]
     Active Substance: BARICITINIB
     Indication: Dermatitis atopic
     Dosage: 4 MG, DAILY
     Route: 048
     Dates: start: 202308, end: 20240327
  2. ATORVASTATIN [Suspect]
     Active Substance: ATORVASTATIN
     Indication: Dyslipidaemia
     Dosage: 20 MG, DAILY
     Route: 048
     Dates: start: 20231219, end: 20240327

REACTIONS (4)
  - Condition aggravated [Recovered/Resolved]
  - Hepatic cytolysis [Recovered/Resolved]
  - Photosensitivity reaction [Recovered/Resolved]
  - Eosinophilia [Recovered/Resolved]

NARRATIVE: CASE EVENT DATE: 20240201
